FAERS Safety Report 6208102-4 (Version None)
Quarter: 2009Q2

REPORT INFORMATION
  Report Type: 
  Country: None (occurrence: None)
  Receive Date: 20090529
  Receipt Date: 20090430
  Transmission Date: 20091009
  Serious: No
  Sender: FDA-Public Use
  Company Number: US-KINGPHARMUSA00001-K200900525

PATIENT
  Age: 59 Year
  Sex: Male
  Weight: 104.31 kg

DRUGS (5)
  1. FLECTOR [Suspect]
     Indication: PAIN IN EXTREMITY
     Dosage: 1 PATCH, TID
     Route: 061
     Dates: start: 20090427, end: 20090428
  2. FLECTOR [Suspect]
     Indication: MUSCULOSKELETAL STIFFNESS
  3. AMINO ACIDS [Concomitant]
     Dosage: UNK, QD
     Route: 048
     Dates: start: 20090101
  4. ASCORBIC ACID [Concomitant]
     Dosage: UNK, QD
     Route: 048
     Dates: start: 20090101
  5. VITAMIN E [Concomitant]
     Dosage: UNK, QD
     Route: 048
     Dates: start: 20090101

REACTIONS (7)
  - CHILLS [None]
  - DIARRHOEA [None]
  - HYPERHIDROSIS [None]
  - INFLUENZA LIKE ILLNESS [None]
  - PAIN [None]
  - PERIPHERAL COLDNESS [None]
  - PYREXIA [None]
